FAERS Safety Report 4378612-3 (Version None)
Quarter: 2004Q2

REPORT INFORMATION
  Report Type: 
  Country: None (occurrence: None)
  Receive Date: 20040609
  Receipt Date: 20040525
  Transmission Date: 20050107
  Serious: Yes (Death, Hospitalization)
  Sender: FDA-Public Use
  Company Number: 2004-BP-04065BR

PATIENT
  Age: 70 Year
  Sex: 0

DRUGS (2)
  1. SPIRIVA [Suspect]
     Indication: CHRONIC OBSTRUCTIVE AIRWAYS DISEASE
     Dosage: 18 MCG, 1 KAI OAD  IH
     Route: 055
  2. OXYGEN [Concomitant]

REACTIONS (3)
  - BLADDER CANCER [None]
  - CHRONIC OBSTRUCTIVE AIRWAYS DISEASE EXACERBATED [None]
  - PULMONARY FIBROSIS [None]
